FAERS Safety Report 10621599 (Version 1)
Quarter: 2014Q4

REPORT INFORMATION
  Report Type: Spontaneous
  Country: FR (occurrence: FR)
  Receive Date: 20141203
  Receipt Date: 20141203
  Transmission Date: 20150529
  Serious: Yes (Hospitalization)
  Sender: FDA-Public Use
  Company Number: FR-009507513-1412FRA000763

PATIENT
  Age: 67 Year
  Sex: Female

DRUGS (7)
  1. CARBOPLATIN. [Suspect]
     Active Substance: CARBOPLATIN
     Indication: METASTASES TO PERITONEUM
     Dosage: CYCLE 1: TOTAL DOSE: 602 MG, 10MG/ML EVERY CYCLE IN INTRAVENOUS INFUSION
     Route: 042
     Dates: start: 20140707, end: 20140707
  2. CARBOPLATIN. [Suspect]
     Active Substance: CARBOPLATIN
     Dosage: CYCLE 2: TOTAL DOSE: 500MG, 10MG/ML EVERY CYCLE IN INTRAVENOUS INFUSION
     Route: 042
     Dates: start: 20140728, end: 20140728
  3. KABI PACLITAXEL [Suspect]
     Active Substance: PACLITAXEL
     Indication: METASTASES TO PERITONEUM
     Dosage: CYCLE 1: TOTAL DOSE: 329 MG, 6 MG/ML EVERY CYCLE IN INTRAVENOUS INFUSION
     Route: 042
     Dates: start: 20140707, end: 20140707
  4. KABI PACLITAXEL [Suspect]
     Active Substance: PACLITAXEL
     Dosage: CYCLE 2: TOTAL DOSE: 329 MG, 6 MG/ML EVERY CYCLE IN INTRAVENOUS INFUSION
     Route: 042
     Dates: start: 20140728, end: 20140728
  5. GINKGO [Concomitant]
     Active Substance: GINKGO
     Dosage: UNK
  6. EMEND [Suspect]
     Active Substance: APREPITANT
     Indication: PROPHYLAXIS OF NAUSEA AND VOMITING
     Dosage: TAKEN FOR 3 DAYS EACH CYCLE
     Route: 048
     Dates: start: 20140728, end: 20140731
  7. EMEND [Suspect]
     Active Substance: APREPITANT
     Dosage: TAKEN FOR 3 DAYS EACH CYCLE
     Route: 048
     Dates: start: 20140707, end: 20140710

REACTIONS (1)
  - Jaundice cholestatic [Recovering/Resolving]

NARRATIVE: CASE EVENT DATE: 20140801
